FAERS Safety Report 7978442-7 (Version None)
Quarter: 2011Q4

REPORT INFORMATION
  Report Type: 
  Country: None (occurrence: None)
  Receive Date: 20111214
  Receipt Date: 20111206
  Transmission Date: 20120403
  Serious: Yes (Other)
  Sender: FDA-Public Use
  Company Number: FR-JNJFOC-20111200996

PATIENT
  Age: 42 Year
  Sex: Male

DRUGS (3)
  1. RISPERDAL CONSTA [Suspect]
     Route: 030
  2. RISPERDAL CONSTA [Suspect]
     Route: 030
  3. RISPERDAL CONSTA [Suspect]
     Indication: PRODUCT USED FOR UNKNOWN INDICATION
     Dosage: POSSIBLY IN EARLY OCT 2011
     Route: 030

REACTIONS (9)
  - DEVICE LEAKAGE [None]
  - PRODUCT QUALITY ISSUE [None]
  - OVERDOSE [None]
  - INCORRECT DOSE ADMINISTERED BY DEVICE [None]
  - FOREIGN BODY [None]
  - UNDERDOSE [None]
  - PSYCHOTIC DISORDER [None]
  - DEVICE BREAKAGE [None]
  - NEEDLE ISSUE [None]
